FAERS Safety Report 8280617-7 (Version None)
Quarter: 2012Q2

REPORT INFORMATION
  Report Type: 
  Country: None (occurrence: None)
  Receive Date: 20120412
  Receipt Date: 20120221
  Transmission Date: 20120825
  Serious: Yes (Other)
  Sender: FDA-Public Use
  Company Number: US-ASTRAZENECA-2011SE64790

PATIENT
  Age: 32 Year
  Sex: Female

DRUGS (4)
  1. OTHER MEDICATIONS [Concomitant]
  2. ZANTAC [Concomitant]
  3. NEXIUM [Suspect]
     Route: 048
  4. OTC [Concomitant]

REACTIONS (5)
  - GASTROOESOPHAGEAL REFLUX DISEASE [None]
  - PAIN [None]
  - DIARRHOEA [None]
  - WRONG DRUG ADMINISTERED [None]
  - DRUG DOSE OMISSION [None]
